FAERS Safety Report 16501550 (Version 1)
Quarter: 2019Q3

REPORT INFORMATION
  Report Type: Spontaneous
  Country: IT (occurrence: IT)
  Receive Date: 20190701
  Receipt Date: 20190701
  Transmission Date: 20191004
  Serious: Yes (Other)
  Sender: FDA-Public Use
  Company Number: IT-GILEAD-2019-0411945

PATIENT
  Age: 60 Year
  Sex: Male

DRUGS (5)
  1. CISPLATIN. [Concomitant]
     Active Substance: CISPLATIN
  2. NIVOLUMAB [Concomitant]
     Active Substance: NIVOLUMAB
  3. EPCLUSA [Suspect]
     Active Substance: SOFOSBUVIR\VELPATASVIR
     Indication: CHRONIC HEPATITIS C
     Dosage: UNK
     Route: 065
     Dates: start: 201707, end: 2017
  4. THIAZIDE [Concomitant]
     Active Substance: UNSPECIFIED INGREDIENT
  5. GEMCITABINE. [Concomitant]
     Active Substance: GEMCITABINE

REACTIONS (6)
  - Metastases to liver [Unknown]
  - Pulmonary mass [Unknown]
  - Hepatitis C [Not Recovered/Not Resolved]
  - Renal cyst [Unknown]
  - Treatment failure [Not Recovered/Not Resolved]
  - Metastases to liver [Unknown]

NARRATIVE: CASE EVENT DATE: 2018
